FAERS Safety Report 14099771 (Version 1)
Quarter: 2017Q4

REPORT INFORMATION
  Report Type: Spontaneous
  Country: SI (occurrence: SI)
  Receive Date: 20171017
  Receipt Date: 20171017
  Transmission Date: 20180321
  Serious: Yes (Life-Threatening, Hospitalization)
  Sender: FDA-Public Use
  Company Number: SI-SA-2017SA198749

PATIENT
  Age: 77 Year
  Sex: Female
  Weight: 59 kg

DRUGS (8)
  1. PLAVIX [Suspect]
     Active Substance: CLOPIDOGREL BISULFATE
     Indication: PERCUTANEOUS CORONARY INTERVENTION
     Route: 048
     Dates: start: 20170705, end: 20170902
  2. ASPIRIN. [Concomitant]
     Active Substance: ASPIRIN
  3. PLIVIT D3 [Concomitant]
     Active Substance: CHOLECALCIFEROL
     Dosage: 35GTT/WEEK
     Route: 065
  4. CONCOR [Concomitant]
     Active Substance: BISOPROLOL FUMARATE
  5. RENVELA [Concomitant]
     Active Substance: SEVELAMER CARBONATE
     Dosage: 3X1/DAY
     Route: 065
  6. ROCALTROL [Concomitant]
     Active Substance: CALCITRIOL
     Dosage: 1DF EVERY SECOND DAY
     Route: 065
  7. NOLPAZA [Suspect]
     Active Substance: PANTOPRAZOLE SODIUM
     Indication: GASTRITIS
     Route: 048
     Dates: start: 20170705, end: 20170902
  8. EDEMID FORTE [Concomitant]
     Active Substance: FUROSEMIDE
     Dosage: 2X1/4 TBL./DAY

REACTIONS (3)
  - Agranulocytosis [Recovered/Resolved]
  - Catheter site infection [Recovered/Resolved]
  - Staphylococcal sepsis [Recovered/Resolved]
